FAERS Safety Report 6218778-3 (Version None)
Quarter: 2009Q2

REPORT INFORMATION
  Report Type: 
  Country: None (occurrence: None)
  Receive Date: 20090608
  Receipt Date: 20090525
  Transmission Date: 20091009
  Serious: Yes (Death)
  Sender: FDA-Public Use
  Company Number: SE-ELI_LILLY_AND_COMPANY-SE200905005760

PATIENT
  Age: 49 Year
  Sex: Male

DRUGS (12)
  1. ZYPREXA [Suspect]
     Indication: SCHIZOPHRENIA
     Dosage: 7.5 MG, DAILY (1/D)
     Route: 048
  2. ZYPREXA [Suspect]
     Dosage: 30 MG, DAILY (1/D)
     Dates: start: 20051105, end: 20051109
  3. ZYPREXA [Suspect]
     Dates: start: 20051101
  4. LAMICTAL [Concomitant]
     Dosage: 100 MG, UNK
  5. LITHIUM CARBONATE [Concomitant]
  6. RISPERDAL CONSTA [Concomitant]
  7. LEVOTHYROXINE SODIUM [Concomitant]
     Dosage: 100 UG, UNK
  8. PROPAVAN [Concomitant]
     Dosage: 25 MG, UNK
  9. DIAZEPAM [Concomitant]
     Dosage: 5 MG, UNK
  10. ANTABUSE [Concomitant]
     Dosage: 200 MG, UNK
  11. FLUNITRAZEPAM [Concomitant]
     Dosage: 1 MG, UNK
  12. LOPERAMIDE [Concomitant]
     Dosage: 2 MG, UNK

REACTIONS (4)
  - DEATH [None]
  - DYSARTHRIA [None]
  - INSOMNIA [None]
  - OVERDOSE [None]
